FAERS Safety Report 24379508 (Version 1)
Quarter: 2024Q3

REPORT INFORMATION
  Report Type: Spontaneous
  Country: CN (occurrence: CN)
  Receive Date: 20240930
  Receipt Date: 20240930
  Transmission Date: 20241017
  Serious: Yes (Other)
  Sender: OTSUKA
  Company Number: CN-OTSUKA-2024_026498

PATIENT
  Age: 80 Year
  Sex: Male
  Weight: 52.5 kg

DRUGS (2)
  1. TOLVAPTAN [Suspect]
     Active Substance: TOLVAPTAN
     Indication: Cardiac failure acute
     Dosage: 15 MG, QD
     Route: 048
     Dates: start: 20240903, end: 20240911
  2. TOLVAPTAN [Suspect]
     Active Substance: TOLVAPTAN
     Indication: Hyponatraemia

REACTIONS (3)
  - Altered state of consciousness [Recovered/Resolved]
  - Hypovolaemic shock [Recovered/Resolved]
  - Hypernatraemia [Recovered/Resolved]

NARRATIVE: CASE EVENT DATE: 20240911
